FAERS Safety Report 9524117 (Version 1)
Quarter: 2013Q3

REPORT INFORMATION
  Report Type: Spontaneous
  Country: US (occurrence: None)
  Receive Date: 20130912
  Receipt Date: 20130912
  Transmission Date: 20140515
  Serious: Yes (Hospitalization, Other)
  Sender: FDA-Public Use
  Company Number: None

PATIENT
  Age: 26 Year
  Sex: Female
  Weight: 71.67 kg

DRUGS (1)
  1. LEXAPRO [Suspect]
     Indication: DEPRESSION
     Route: 048
     Dates: start: 20080310, end: 20110829

REACTIONS (4)
  - Speech disorder [None]
  - Gait disturbance [None]
  - Endometriosis [None]
  - Fibromyalgia [None]
